FAERS Safety Report 8889361 (Version 1)
Quarter: 2012Q4

REPORT INFORMATION
  Report Type: Spontaneous
  Country: US (occurrence: None)
  Receive Date: 20121102
  Receipt Date: 20121102
  Transmission Date: 20130627
  Serious: No
  Sender: FDA-Public Use
  Company Number: None

PATIENT
  Age: 64 Year
  Sex: Male

DRUGS (3)
  1. NEUPRO [Suspect]
     Indication: PARKINSON^S DISEASE
     Dates: start: 201207
  2. REQUIP [Suspect]
     Indication: PARKINSON^S DISEASE
     Dates: start: 2011, end: 2012
  3. AMANTADINE [Suspect]

REACTIONS (1)
  - Oedema peripheral [None]
